FAERS Safety Report 12856967 (Version 2)
Quarter: 2016Q4

REPORT INFORMATION
  Report Type: Spontaneous
  Country: US (occurrence: US)
  Receive Date: 20161018
  Receipt Date: 20161027
  Transmission Date: 20170207
  Serious: No
  Sender: FDA-Public Use
  Company Number: US-HORIZON-RAV-0208-2016

PATIENT
  Age: 3 Year
  Sex: Male

DRUGS (4)
  1. SOLCARB [Concomitant]
  2. RAVICTI [Suspect]
     Active Substance: GLYCEROL PHENYLBUTYRATE
     Indication: ORNITHINE TRANSCARBAMOYLASE DEFICIENCY
     Dosage: 2.5 ML TID, 7 ML DAILY ORALLY (RAVICTI WAS INCREASED TO 3 ML TID AS SICK PROTOCOL FOR 2 DAYS)
     Route: 048
     Dates: start: 20130828
  3. PRO-PHREE [Concomitant]
  4. ANAMIX JUNIOR [Concomitant]

REACTIONS (1)
  - Sinusitis [Recovered/Resolved]
